FAERS Safety Report 15330352 (Version 2)
Quarter: 2019Q1

REPORT INFORMATION
  Report Type: Spontaneous
  Country: US (occurrence: US)
  Receive Date: 20180829
  Receipt Date: 20190117
  Transmission Date: 20190417
  Serious: No
  Sender: FDA-Public Use
  Company Number: US-SA-2018SA236272

PATIENT
  Age: 38 Year
  Sex: Female

DRUGS (2)
  1. ZYRTEC [Concomitant]
     Active Substance: CETIRIZINE HYDROCHLORIDE
  2. DUPIXENT [Suspect]
     Active Substance: DUPILUMAB
     Indication: DERMATITIS ATOPIC
     Dosage: UNK
     Route: 058
     Dates: start: 20171108

REACTIONS (4)
  - Dermatitis atopic [Unknown]
  - Dry eye [Recovering/Resolving]
  - Wrong schedule [Unknown]
  - Product dose omission [Unknown]

NARRATIVE: CASE EVENT DATE: 20180808
